FAERS Safety Report 21742394 (Version 1)
Quarter: 2022Q4

REPORT INFORMATION
  Report Type: Spontaneous
  Country: US (occurrence: US)
  Receive Date: 20221216
  Receipt Date: 20221216
  Transmission Date: 20230113
  Serious: No
  Sender: FDA-Public Use
  Company Number: US-BIOMARINAP-US-2022-147496

PATIENT

DRUGS (1)
  1. KUVAN [Suspect]
     Active Substance: SAPROPTERIN DIHYDROCHLORIDE
     Indication: Phenylketonuria
     Dosage: 2200 MILLIGRAM, QD
     Route: 048

REACTIONS (2)
  - Nasopharyngitis [Unknown]
  - Amino acid level increased [Unknown]
